FAERS Safety Report 11024987 (Version 3)
Quarter: 2015Q3

REPORT INFORMATION
  Report Type: Spontaneous
  Country: IT (occurrence: IT)
  Receive Date: 20150414
  Receipt Date: 20150820
  Transmission Date: 20151125
  Serious: Yes (Other)
  Sender: FDA-Public Use
  Company Number: IT-TEVA-553465ACC

PATIENT
  Age: 66 Year
  Sex: Female

DRUGS (3)
  1. SOLDESAM [Concomitant]
     Active Substance: DEXAMETHASONE
     Indication: PRODUCT USED FOR UNKNOWN INDICATION
     Dosage: 8 MG
     Route: 042
     Dates: start: 20150325, end: 20150325
  2. CISPLATIN. [Suspect]
     Active Substance: CISPLATIN
     Indication: LUNG NEOPLASM MALIGNANT
     Dosage: 105 MG CYCLICAL
     Route: 042
     Dates: start: 20150325, end: 20150325
  3. PALONOSETRON HYDROCHLORIDE [Concomitant]
     Active Substance: PALONOSETRON HYDROCHLORIDE
     Indication: PRODUCT USED FOR UNKNOWN INDICATION
     Dosage: 250 MG
     Route: 042
     Dates: start: 20150325, end: 20150325

REACTIONS (5)
  - Oedema [Recovering/Resolving]
  - Eyelids pruritus [Recovering/Resolving]
  - Seborrhoea [Recovering/Resolving]
  - Pruritus [Recovering/Resolving]
  - Face oedema [Recovering/Resolving]

NARRATIVE: CASE EVENT DATE: 20150325
